FAERS Safety Report 5642093-X (Version None)
Quarter: 2008Q1

REPORT INFORMATION
  Report Type: 
  Country: None (occurrence: None)
  Receive Date: 20080131
  Receipt Date: 20071221
  Transmission Date: 20080703
  Serious: Yes (Hospitalization, Other)
  Sender: FDA-Public Use
  Company Number: US200712000339

PATIENT
  Age: 49 Year
  Sex: Female

DRUGS (11)
  1. BYETTA [Suspect]
     Dosage: 5, 10 UG, 2/D, SUBCUTANEOUS
     Route: 058
     Dates: start: 20051104, end: 20051204
  2. BYETTA [Suspect]
     Dosage: 5, 10 UG, 2/D, SUBCUTANEOUS
     Route: 058
     Dates: start: 20051204, end: 20071125
  3. EXENATIDE PEN, DISPOSABLE DEVICE (EXENATIDE PEN) [Concomitant]
  4. PROZAC [Concomitant]
  5. HYZAAR [Concomitant]
  6. COZAAR (LOSARTAN POTASSIU) [Concomitant]
  7. ASPIRIN [Concomitant]
  8. LIPITOR [Concomitant]
  9. TOPROL-XL [Concomitant]
  10. LANTUS [Concomitant]
  11. PRILOSEC [Concomitant]

REACTIONS (1)
  - PANCREATITIS [None]
